FAERS Safety Report 7049494-6 (Version None)
Quarter: 2010Q4

REPORT INFORMATION
  Report Type: 
  Country: None (occurrence: None)
  Receive Date: 20101007
  Receipt Date: 20101004
  Transmission Date: 20110411
  Serious: Yes (Other)
  Sender: FDA-Public Use
  Company Number: 2010SP052463

PATIENT
  Sex: Female

DRUGS (5)
  1. MIRALAX [Suspect]
     Indication: CONSTIPATION
     Dosage: ONCE;PO, 8.5 GM;ONCE;PO
     Route: 048
     Dates: start: 20100927
  2. MIRALAX [Suspect]
     Indication: CONSTIPATION
     Dosage: ONCE;PO, 8.5 GM;ONCE;PO
     Route: 048
     Dates: start: 20101001
  3. ZOCOR [Concomitant]
  4. CARDIZEM [Concomitant]
  5. XANAX [Concomitant]

REACTIONS (1)
  - FAECES DISCOLOURED [None]
